FAERS Safety Report 13123465 (Version 2)
Quarter: 2018Q1

REPORT INFORMATION
  Report Type: Report from Study
  Country: US (occurrence: US)
  Receive Date: 20170117
  Receipt Date: 20180322
  Transmission Date: 20180508
  Serious: Yes (Hospitalization)
  Sender: FDA-Public Use
  Company Number: US-ACTELION-A-NJ2017-148291

PATIENT
  Age: 49 Year
  Sex: Female
  Weight: 104.31 kg

DRUGS (5)
  1. LETAIRIS [Concomitant]
     Active Substance: AMBRISENTAN
  2. ADCIRCA [Concomitant]
     Active Substance: TADALAFIL
  3. WARFARIN [Concomitant]
     Active Substance: WARFARIN
  4. UPTRAVI [Suspect]
     Active Substance: SELEXIPAG
     Indication: PULMONARY HYPERTENSION
     Dosage: 800 MCG, BID
     Route: 048
     Dates: start: 20160330
  5. UPTRAVI [Suspect]
     Active Substance: SELEXIPAG
     Dosage: 1600 MCG, BID
     Route: 048

REACTIONS (4)
  - Influenza [Unknown]
  - Nausea [Unknown]
  - Pneumonia [Unknown]
  - Vomiting [Unknown]
